FAERS Safety Report 10233859 (Version 1)
Quarter: 2014Q2

REPORT INFORMATION
  Report Type: Spontaneous
  Country: DE (occurrence: None)
  Receive Date: 20140610
  Receipt Date: 20140610
  Transmission Date: 20141212
  Serious: Yes (Other)
  Sender: FDA-Public Use
  Company Number: AUR-APL-2014-06178

PATIENT
  Age: 59 Year
  Sex: Female

DRUGS (9)
  1. RIBAVIRIN [Suspect]
     Indication: HEPATIC FIBROSIS
  2. RIBAVIRIN [Suspect]
     Indication: HEPATITIS CHOLESTATIC
  3. RIBAVIRIN [Suspect]
     Indication: HEPATITIS C
  4. TELAPREVIR [Suspect]
     Indication: HEPATIC FIBROSIS
  5. TELAPREVIR [Suspect]
     Indication: HEPATITIS CHOLESTATIC
  6. TELAPREVIR [Suspect]
     Indication: HEPATITIS C
  7. PEGINTERFERON ALFA-2B [Suspect]
     Indication: HEPATIC FIBROSIS
  8. PEGINTERFERON ALFA-2B [Suspect]
     Indication: HEPATITIS CHOLESTATIC
  9. PEGINTERFERON ALFA-2B [Suspect]
     Indication: HEPATITIS C

REACTIONS (6)
  - Toxicity to various agents [None]
  - Malaise [None]
  - Nausea [None]
  - Pyrexia [None]
  - Anaemia [None]
  - Leukopenia [None]
